FAERS Safety Report 23148902 (Version 2)
Quarter: 2025Q2

REPORT INFORMATION
  Report Type: Report from Study
  Country: CA (occurrence: CA)
  Receive Date: 20231106
  Receipt Date: 20250404
  Transmission Date: 20250717
  Serious: Yes (Other)
  Sender: TAKEDA
  Company Number: CA-TAKEDA-2017TUS019476

PATIENT
  Age: 33 Year
  Sex: Female

DRUGS (7)
  1. VEDOLIZUMAB [Suspect]
     Active Substance: VEDOLIZUMAB
     Indication: Crohn^s disease
  2. VEDOLIZUMAB [Suspect]
     Active Substance: VEDOLIZUMAB
  3. VEDOLIZUMAB [Suspect]
     Active Substance: VEDOLIZUMAB
  4. IRON [Concomitant]
     Active Substance: IRON
  5. VITAMIN D [Concomitant]
     Active Substance: VITAMIN D NOS
  6. B12 [Concomitant]
     Dosage: 1 MILLIGRAM, MONTHLY
  7. MERCAPTOPURINE [Concomitant]
     Active Substance: MERCAPTOPURINE
     Dosage: 50 MILLIGRAM, QD
     Dates: start: 20141001

REACTIONS (3)
  - Cystitis [Recovered/Resolved]
  - Urinary tract infection [Recovered/Resolved]
  - Nasopharyngitis [Recovered/Resolved]

NARRATIVE: CASE EVENT DATE: 20170801
